FAERS Safety Report 17014384 (Version 1)
Quarter: 2019Q4

REPORT INFORMATION
  Report Type: Spontaneous
  Country: GB (occurrence: GB)
  Receive Date: 20191111
  Receipt Date: 20191111
  Transmission Date: 20200122
  Serious: Yes (Hospitalization)
  Sender: FDA-Public Use
  Company Number: GB-TEVA-2019-GB-1135670

PATIENT
  Age: 74 Year
  Sex: Female
  Weight: 56.35 kg

DRUGS (8)
  1. FLUOXETINE [Concomitant]
     Active Substance: FLUOXETINE HYDROCHLORIDE
  2. LORAZEPAM. [Concomitant]
     Active Substance: LORAZEPAM
  3. DALTEPARIN [Concomitant]
     Active Substance: DALTEPARIN
  4. MIRTAZAPINE. [Suspect]
     Active Substance: MIRTAZAPINE
     Indication: DEPRESSED MOOD
     Dosage: 15MG/ 5 DAYS
     Route: 048
     Dates: start: 20190926, end: 20191001
  5. ONDANSETRON [Concomitant]
     Active Substance: ONDANSETRON
  6. PARACETAMOL [Concomitant]
     Active Substance: ACETAMINOPHEN
  7. PROCHLORPERAZINE. [Concomitant]
     Active Substance: PROCHLORPERAZINE
  8. SODIUM ALGINATE [Concomitant]
     Active Substance: SODIUM ALGINATE

REACTIONS (1)
  - Liver function test increased [Recovered/Resolved]

NARRATIVE: CASE EVENT DATE: 20190930
